FAERS Safety Report 4343018-X (Version None)
Quarter: 2004Q1

REPORT INFORMATION
  Report Type: 
  Country: None (occurrence: None)
  Receive Date: 20040325
  Receipt Date: 20040129
  Transmission Date: 20041129
  Serious: No
  Sender: FDA-Public Use
  Company Number: USA030227689

PATIENT
  Age: 67 Year
  Sex: Female

DRUGS (5)
  1. FORTEO [Suspect]
     Indication: OSTEOPOROSIS
     Dosage: 0.02 MG/DAY
     Dates: start: 20030114
  2. ACTONEL [Concomitant]
  3. ASPIRIN [Concomitant]
  4. PYRIDIUM (PHENAZOPYRIDINE HYDROCHLORIDE) [Concomitant]
  5. VITAMIN E [Concomitant]

REACTIONS (7)
  - BONE DENSITY DECREASED [None]
  - JOINT SWELLING [None]
  - MYALGIA [None]
  - OEDEMA PERIPHERAL [None]
  - SWELLING [None]
  - TINNITUS [None]
  - VERTIGO [None]
